FAERS Safety Report 9503281 (Version 2)
Quarter: 2013Q3

REPORT INFORMATION
  Report Type: Report from Study
  Country: US (occurrence: US)
  Receive Date: 20130906
  Receipt Date: 20130916
  Transmission Date: 20140515
  Serious: Yes (Hospitalization, Disabling)
  Sender: FDA-Public Use
  Company Number: US-TAKEDA-2013TUS000004

PATIENT
  Age: 61 Year
  Sex: Male
  Weight: 164.6 kg

DRUGS (27)
  1. BLINDED ALLOPURINOL [Suspect]
     Indication: HYPERURICAEMIA
     Dosage: 1 UNK, UNK
     Route: 048
     Dates: start: 20130228
  2. BLINDED FEBUXOSTAT [Suspect]
     Indication: HYPERURICAEMIA
     Dosage: 1 UNK, UNK
     Route: 048
     Dates: start: 20130228
  3. TRAZODONE [Concomitant]
     Indication: INSOMNIA
     Dosage: 150 MG, QD
     Route: 048
     Dates: start: 2002, end: 20130804
  4. TRAZODONE [Concomitant]
     Indication: INSOMNIA
  5. BUMETANIDE [Concomitant]
     Indication: OEDEMA PERIPHERAL
     Dosage: 1 MG, BID
     Route: 048
     Dates: start: 20130227, end: 20130804
  6. METOLAZONE [Concomitant]
     Indication: OEDEMA PERIPHERAL
     Dosage: 5 MG, PRN
     Route: 048
     Dates: start: 2009
  7. LISINOPRIL [Concomitant]
     Indication: HYPERTENSION
     Dosage: 10 MG, QD
     Route: 048
     Dates: start: 2003, end: 20130804
  8. SIMVASTATIN [Concomitant]
     Indication: HYPERLIPIDAEMIA
     Dosage: 10 MG, QD
     Route: 048
     Dates: start: 2003, end: 20130804
  9. LYRICA [Concomitant]
     Indication: DIABETIC NEUROPATHY
     Dosage: 150 MG, QD
     Route: 048
     Dates: start: 2003, end: 20130513
  10. TRILIPIX [Concomitant]
     Indication: HYPERLIPIDAEMIA
     Dosage: 135 MG, QD
     Route: 048
     Dates: start: 2008, end: 20130804
  11. REQUIP [Concomitant]
     Indication: RESTLESS LEGS SYNDROME
     Dosage: 1 MG, QD
     Route: 048
     Dates: start: 2012, end: 201305
  12. FINASTERIDE [Concomitant]
     Indication: BENIGN PROSTATIC HYPERPLASIA
     Dosage: 5 MG, QD
     Route: 048
     Dates: start: 2008, end: 20130804
  13. NIASPAN [Concomitant]
     Indication: HYPERLIPIDAEMIA
     Dosage: 1000 MG, QD
     Route: 048
     Dates: start: 2009, end: 201305
  14. VITAMIN D                          /00107901/ [Concomitant]
     Indication: VITAMIN D DEFICIENCY
     Dosage: 1000 IU, QD
     Route: 048
     Dates: start: 2012, end: 20130804
  15. TRAMADOL [Concomitant]
     Indication: BACK PAIN
     Dosage: 50 MG, PRN
     Route: 048
     Dates: start: 2009
  16. HUMALOG                            /00030501/ [Concomitant]
     Indication: DIABETES MELLITUS
     Dosage: UNK IU, PRN
     Route: 058
     Dates: start: 2001
  17. LANTUS [Concomitant]
     Indication: DIABETES MELLITUS
     Dosage: 60 IU, BID
     Route: 058
     Dates: start: 2001, end: 20130804
  18. FOLIC ACID [Concomitant]
     Indication: MEDICAL DIET
     Dosage: 1 MG, QD
     Route: 048
     Dates: start: 2007, end: 20130804
  19. IRON [Concomitant]
     Indication: ANAEMIA
     Dosage: 50 MG, BID
     Route: 048
     Dates: start: 201208, end: 20130804
  20. ASPIRIN [Concomitant]
     Indication: CORONARY ARTERY DISEASE
     Dosage: 81 MG, QD
     Route: 048
     Dates: start: 2001, end: 20130804
  21. TYLENOL                            /00020001/ [Concomitant]
     Indication: BACK PAIN
     Dosage: 200 MG, UNK
     Route: 048
     Dates: start: 2001
  22. VITAMIN B 12 LICHTENSTEIN [Concomitant]
     Indication: MEDICAL DIET
     Dosage: 1 MG, QD
     Route: 048
     Dates: start: 2012, end: 20130804
  23. REQUIP [Concomitant]
     Indication: RESTLESS LEGS SYNDROME
     Dosage: 2 MG, QD
     Route: 048
     Dates: start: 201305, end: 20130804
  24. GABAPENTIN [Concomitant]
     Indication: DIABETIC NEUROPATHY
     Dosage: 300 MG, QD
     Route: 048
     Dates: start: 20130514, end: 20130804
  25. COLCHICINE [Concomitant]
     Dosage: UNK
     Dates: start: 20130219
  26. ALLOPURINOL [Concomitant]
     Indication: HYPERURICAEMIA
     Dosage: UNK
     Dates: start: 1986, end: 20130219
  27. DOXYCILLIN [Concomitant]
     Indication: OSTEOMYELITIS
     Dosage: 100 MG, BID
     Route: 048
     Dates: start: 20130207, end: 20130506

REACTIONS (1)
  - Diabetic foot [Recovered/Resolved]
